FAERS Safety Report 18728604 (Version 3)
Quarter: 2021Q1

REPORT INFORMATION
  Report Type: Report from Study
  Country: KR (occurrence: KR)
  Receive Date: 20210112
  Receipt Date: 20210326
  Transmission Date: 20210419
  Serious: Yes (Life-Threatening, Hospitalization, Other)
  Sender: FDA-Public Use
  Company Number: KR-ASTELLAS-2021US001101

PATIENT
  Age: 60 Year
  Sex: Male
  Weight: 58 kg

DRUGS (6)
  1. ENZALUTAMIDE [Suspect]
     Active Substance: ENZALUTAMIDE
     Indication: HORMONE-REFRACTORY PROSTATE CANCER
     Route: 048
     Dates: start: 20200922, end: 20200929
  2. MEGACE F [Concomitant]
     Indication: DECREASED APPETITE
     Dosage: 5ML/PACK, UNKNOWN FREQ.
     Route: 048
  3. TRIAXONE [Concomitant]
     Indication: PROPHYLAXIS
     Route: 065
     Dates: end: 20201013
  4. URSODEOXYCHOLIC ACID [Concomitant]
     Active Substance: URSODIOL
     Indication: HEPATIC ENZYME INCREASED
     Route: 048
     Dates: end: 20201013
  5. THRUPASS ODT [Concomitant]
     Indication: DYSURIA
     Route: 048
  6. ALBUMIN [Concomitant]
     Active Substance: ALBUMIN HUMAN
     Indication: BLOOD ALBUMIN DECREASED
     Route: 065
     Dates: end: 20200929

REACTIONS (2)
  - Blood pressure systolic increased [Recovered/Resolved]
  - Seizure [Recovered/Resolved]

NARRATIVE: CASE EVENT DATE: 20200927
